FAERS Safety Report 4733564-9 (Version None)
Quarter: 2005Q3

REPORT INFORMATION
  Report Type: 
  Country: None (occurrence: None)
  Receive Date: 20050729
  Receipt Date: 20050721
  Transmission Date: 20060218
  Serious: Yes (Hospitalization)
  Sender: FDA-Public Use
  Company Number: 2005RL000088

PATIENT
  Age: 24 Year
  Sex: Male

DRUGS (2)
  1. NIZATIDINE [Suspect]
     Dosage: PO
     Route: 048
  2. FERROUS SODIUM CITRATE [Concomitant]

REACTIONS (7)
  - CONJUNCTIVAL DISORDER [None]
  - HEADACHE [None]
  - HYPERTHERMIA [None]
  - HYPERVENTILATION [None]
  - HYPOAESTHESIA [None]
  - PHARYNGEAL OEDEMA [None]
  - PYREXIA [None]
